FAERS Safety Report 7975320-4 (Version None)
Quarter: 2011Q4

REPORT INFORMATION
  Report Type: 
  Country: None (occurrence: None)
  Receive Date: 20111213
  Receipt Date: 20110926
  Transmission Date: 20120403
  Serious: No
  Sender: FDA-Public Use
  Company Number: US-AMGEN-USASP2011049564

PATIENT
  Age: 60 Year
  Sex: Female

DRUGS (3)
  1. MELOXICAM [Concomitant]
  2. ENBREL [Suspect]
     Indication: RHEUMATOID ARTHRITIS
     Dosage: 50 MG, QWK
     Dates: start: 20110805
  3. METHOTREXATE [Concomitant]

REACTIONS (3)
  - BLOOD CREATININE INCREASED [None]
  - ALANINE AMINOTRANSFERASE INCREASED [None]
  - DRUG INEFFECTIVE [None]
